FAERS Safety Report 21310636 (Version 1)
Quarter: 2022Q3

REPORT INFORMATION
  Report Type: Spontaneous
  Country: US (occurrence: US)
  Receive Date: 20220909
  Receipt Date: 20220909
  Transmission Date: 20221027
  Serious: Yes (Other)
  Sender: FDA-Public Use
  Company Number: US-SA-SAC20220906001264

PATIENT

DRUGS (1)
  1. ZANTAC [Suspect]
     Active Substance: RANITIDINE HYDROCHLORIDE
     Dosage: UNK OVER THE COUNTER
     Route: 065
     Dates: start: 2006, end: 2009

REACTIONS (2)
  - Colorectal cancer [Unknown]
  - Cervix carcinoma [Unknown]
